FAERS Safety Report 4684784-3 (Version None)
Quarter: 2005Q2

REPORT INFORMATION
  Report Type: 
  Country: None (occurrence: None)
  Receive Date: 20050606
  Receipt Date: 20050425
  Transmission Date: 20051028
  Serious: Yes (Hospitalization)
  Sender: FDA-Public Use
  Company Number: USA050496440

PATIENT
  Age: 48 Year
  Sex: Male
  Weight: 60 kg

DRUGS (6)
  1. ALIMTA [Suspect]
     Indication: MESOTHELIOMA
     Dosage: 500 MG/M2/1 OTHER
     Dates: start: 20050101
  2. CARBOPLATIN [Concomitant]
  3. ALOXI [Concomitant]
  4. VITAMIN B-12 [Concomitant]
  5. FOLIC ACID [Concomitant]
  6. VITAMIN B6 [Concomitant]

REACTIONS (1)
  - CHEST PAIN [None]
